FAERS Safety Report 8037356-7 (Version None)
Quarter: 2011Q4

REPORT INFORMATION
  Report Type: 
  Country: None (occurrence: None)
  Receive Date: 20111202
  Receipt Date: 20110228
  Transmission Date: 20120403
  Serious: Yes (Other)
  Sender: FDA-Public Use
  Company Number: 2011SP009525

PATIENT
  Age: 23 Year
  Sex: Female

DRUGS (3)
  1. MICARDIS [Concomitant]
  2. NUVARING [Suspect]
     Indication: PRODUCT USED FOR UNKNOWN INDICATION
  3. GARDASIL [Concomitant]

REACTIONS (2)
  - RASH PRURITIC [None]
  - BLOOD PRESSURE INCREASED [None]
